FAERS Safety Report 11151240 (Version 3)
Quarter: 2016Q1

REPORT INFORMATION
  Report Type: Spontaneous
  Country: US (occurrence: US)
  Receive Date: 20150601
  Receipt Date: 20160219
  Transmission Date: 20160525
  Serious: No
  Sender: FDA-Public Use
  Company Number: US-ASTRAZENECA-2015SE28271

PATIENT
  Age: 820 Month
  Sex: Female
  Weight: 74.8 kg

DRUGS (23)
  1. AROMASIN [Suspect]
     Active Substance: EXEMESTANE
     Indication: CHEMOTHERAPY
     Route: 048
     Dates: start: 201103
  2. ARIMIDEX [Suspect]
     Active Substance: ANASTROZOLE
     Dosage: GENERIC
     Route: 065
  3. AROMASIN [Suspect]
     Active Substance: EXEMESTANE
     Indication: BREAST CANCER FEMALE
     Route: 048
     Dates: start: 201104
  4. AROMASIN [Suspect]
     Active Substance: EXEMESTANE
     Indication: MASTECTOMY
     Route: 048
     Dates: start: 201104
  5. AROMASIN [Suspect]
     Active Substance: EXEMESTANE
     Indication: CHEMOTHERAPY
     Route: 048
     Dates: start: 201104
  6. AROMASIN [Suspect]
     Active Substance: EXEMESTANE
     Indication: CHEMOTHERAPY
     Route: 048
     Dates: start: 201102
  7. VITAMIN D [Concomitant]
     Active Substance: CHOLECALCIFEROL
  8. MULTIVITAMIN [Concomitant]
     Active Substance: VITAMINS
  9. TRIAMTERENE. [Concomitant]
     Active Substance: TRIAMTERENE
     Indication: HYPERTENSION
     Dosage: 37.5/25MG, ONE CAPSULE BY MOUTH A DAY
  10. VITAMIN C [Concomitant]
     Active Substance: ASCORBIC ACID
  11. AROMASIN [Suspect]
     Active Substance: EXEMESTANE
     Indication: BREAST CANCER FEMALE
     Route: 048
     Dates: start: 201103
  12. AROMASIN [Suspect]
     Active Substance: EXEMESTANE
     Indication: BREAST CANCER FEMALE
     Route: 048
     Dates: start: 201102
  13. TRIAMTERENE. [Concomitant]
     Active Substance: TRIAMTERENE
     Indication: BLOOD PRESSURE MANAGEMENT
  14. CALCIUM [Concomitant]
     Active Substance: CALCIUM
  15. VITAMINS NOS [Concomitant]
     Active Substance: VITAMINS
  16. AROMASIN [Suspect]
     Active Substance: EXEMESTANE
     Indication: MASTECTOMY
     Route: 048
     Dates: start: 201103
  17. PROLIA [Concomitant]
     Active Substance: DENOSUMAB
     Indication: BONE DISORDER
     Dosage: EVERY SIX MONTHS
  18. CLINDAMYCIN [Concomitant]
     Active Substance: CLINDAMYCIN\CLINDAMYCIN PHOSPHATE
     Indication: TOOTH INFECTION
     Dosage: TEN DAYS ONLY.
  19. AROMASIN [Suspect]
     Active Substance: EXEMESTANE
     Indication: MASTECTOMY
     Route: 048
     Dates: start: 201102
  20. CHONDRITIN [Concomitant]
  21. ARIMIDEX [Suspect]
     Active Substance: ANASTROZOLE
     Route: 048
     Dates: start: 201102
  22. ALEVE [Suspect]
     Active Substance: NAPROXEN SODIUM
     Indication: PAIN
     Route: 065
  23. GLUCOSAMINE [Concomitant]
     Active Substance: GLUCOSAMINE

REACTIONS (21)
  - Fall [Unknown]
  - Head injury [Unknown]
  - Back pain [Unknown]
  - Hypersomnia [Not Recovered/Not Resolved]
  - Skin irritation [Unknown]
  - Body height decreased [Not Recovered/Not Resolved]
  - Dermatitis allergic [Unknown]
  - Gait disturbance [Unknown]
  - Intentional product misuse [Unknown]
  - Memory impairment [Not Recovered/Not Resolved]
  - Bone density abnormal [Unknown]
  - Alopecia [Not Recovered/Not Resolved]
  - Tooth infection [Unknown]
  - Tooth loss [Not Recovered/Not Resolved]
  - Arthralgia [Unknown]
  - Drug hypersensitivity [Unknown]
  - Malaise [Recovered/Resolved]
  - Device related infection [Not Recovered/Not Resolved]
  - Pain [Not Recovered/Not Resolved]
  - Bone loss [Not Recovered/Not Resolved]
  - Osteoporosis [Recovering/Resolving]

NARRATIVE: CASE EVENT DATE: 201102
